FAERS Safety Report 7540768-9 (Version None)
Quarter: 2011Q2

REPORT INFORMATION
  Report Type: 
  Country: None (occurrence: None)
  Receive Date: 20110610
  Receipt Date: 20110601
  Transmission Date: 20111010
  Serious: Yes (Hospitalization)
  Sender: FDA-Public Use
  Company Number: US-ROCHE-776877

PATIENT
  Sex: Male
  Weight: 73.1 kg

DRUGS (15)
  1. TEMODAR [Concomitant]
     Dates: start: 20110126
  2. ARICEPT [Concomitant]
  3. FLUPHENAZINE [Concomitant]
  4. DEPAKOTE [Concomitant]
  5. CITALOPRAM HYDROBROMIDE [Concomitant]
  6. ZOCOR [Concomitant]
  7. TRAZODONE HCL [Concomitant]
  8. COLACE [Concomitant]
  9. DIAZEPAM [Concomitant]
  10. AVASTIN [Suspect]
     Indication: GLIOBLASTOMA
     Dosage: INFUSION, INFUSION DURATION 30 MINUTES
     Route: 042
     Dates: start: 20110126, end: 20110209
  11. BENZTROPINE MESYLATE [Concomitant]
  12. TERAZOSIN [Concomitant]
  13. AVASTIN [Suspect]
     Dosage: INFUSION DURATION 30 MINUTES
     Route: 042
     Dates: start: 20110510
  14. FINASTERIDE [Concomitant]
  15. PRILOSEC [Concomitant]

REACTIONS (3)
  - FALL [None]
  - CONFUSIONAL STATE [None]
  - URINARY TRACT INFECTION [None]
